FAERS Safety Report 23210810 (Version 2)
Quarter: 2023Q4

REPORT INFORMATION
  Report Type: Report from Study
  Country: US (occurrence: US)
  Receive Date: 20231121
  Receipt Date: 20231221
  Transmission Date: 20240109
  Serious: Yes (Hospitalization)
  Sender: FDA-Public Use
  Company Number: US-TAKEDA-2023TUS112064

PATIENT
  Sex: Female

DRUGS (1)
  1. PONATINIB [Suspect]
     Active Substance: PONATINIB
     Indication: Acute lymphocytic leukaemia
     Dosage: 15 MILLIGRAM, QD
     Route: 048
     Dates: start: 20231128

REACTIONS (6)
  - Hospitalisation [Unknown]
  - Somnolence [Unknown]
  - Dry skin [Unknown]
  - Arthralgia [Unknown]
  - Confusional state [Unknown]
  - Headache [Unknown]
